FAERS Safety Report 21151876 (Version 3)
Quarter: 2022Q3

REPORT INFORMATION
  Report Type: Spontaneous
  Country: US (occurrence: US)
  Receive Date: 20220730
  Receipt Date: 20220927
  Transmission Date: 20221027
  Serious: No
  Sender: FDA-Public Use
  Company Number: US-SA-SAC20220720001241

PATIENT
  Age: 41 Year
  Sex: Female

DRUGS (1)
  1. DUPIXENT [Suspect]
     Active Substance: DUPILUMAB
     Indication: Asthma
     Dosage: 300 MG, QOW
     Route: 058
     Dates: start: 20210516

REACTIONS (9)
  - Dairy intolerance [Unknown]
  - Food allergy [Unknown]
  - Urinary tract infection [Unknown]
  - Visual impairment [Unknown]
  - Eye pain [Unknown]
  - Muscular weakness [Unknown]
  - Disease progression [Unknown]
  - Eye disorder [Unknown]
  - Condition aggravated [Unknown]
